FAERS Safety Report 7589859-7 (Version None)
Quarter: 2011Q2

REPORT INFORMATION
  Report Type: 
  Country: None (occurrence: None)
  Receive Date: 20110627
  Receipt Date: 20110616
  Transmission Date: 20111010
  Serious: Yes (Death, Hospitalization)
  Sender: FDA-Public Use
  Company Number: 118599

PATIENT
  Age: 40 Year
  Sex: Male

DRUGS (1)
  1. CYCLOSPORINE [Suspect]
     Dosage: 4 MG/KG

REACTIONS (2)
  - POST PROCEDURAL PULMONARY EMBOLISM [None]
  - TREATMENT FAILURE [None]
